FAERS Safety Report 4353830-9 (Version None)
Quarter: 2004Q2

REPORT INFORMATION
  Report Type: 
  Country: None (occurrence: None)
  Receive Date: 20040430
  Receipt Date: 20040419
  Transmission Date: 20050107
  Serious: Yes (Hospitalization)
  Sender: FDA-Public Use
  Company Number: 2004201387SE

PATIENT
  Age: 43 Year
  Sex: Female
  Weight: 75.3 kg

DRUGS (3)
  1. EPIRUBICIN [Suspect]
     Indication: BREAST CANCER
     Dosage: 199 MG, CYCLIC
     Dates: start: 20040115, end: 20040226
  2. FLUOROURACIL [Suspect]
     Indication: BREAST CANCER
     Dosage: 1140MG, CYCLIC
     Dates: start: 20040115, end: 20040226
  3. CYCLOPHOSPHAMIDE [Suspect]
     Indication: BREAST CANCER
     Dosage: 2280 MG, CYCLIC
     Dates: start: 20040115, end: 20040226

REACTIONS (2)
  - CATHETER RELATED COMPLICATION [None]
  - THROMBOSIS [None]
